FAERS Safety Report 19351629 (Version 1)
Quarter: 2021Q2

REPORT INFORMATION
  Report Type: Spontaneous
  Country: GB (occurrence: GB)
  Receive Date: 20210531
  Receipt Date: 20210531
  Transmission Date: 20210717
  Serious: Yes (Hospitalization)
  Sender: FDA-Public Use
  Company Number: GB-009507513-2105GBR006777

PATIENT
  Age: 55 Year
  Sex: Male
  Weight: 61 kg

DRUGS (17)
  1. CETIRIZINE DIHYDROCHLORIDE [Concomitant]
     Active Substance: CETIRIZINE HYDROCHLORIDE
  2. LANSOPRAZOL [Concomitant]
     Active Substance: LANSOPRAZOLE
  3. METOCLOPRAMIDE. [Concomitant]
     Active Substance: METOCLOPRAMIDE
  4. PEMBROLIZUMAB. [Suspect]
     Active Substance: PEMBROLIZUMAB
     Indication: NON-SMALL CELL LUNG CANCER STAGE IV
     Dosage: 400MG
     Route: 042
     Dates: start: 20200723, end: 20210422
  5. MORPHINE SULFATE. [Concomitant]
     Active Substance: MORPHINE SULFATE
  6. DOXYCYCLINE. [Concomitant]
     Active Substance: DOXYCYCLINE
  7. OXYCODONE [Concomitant]
     Active Substance: OXYCODONE
  8. FLUCONAZOLE. [Concomitant]
     Active Substance: FLUCONAZOLE
  9. NYSTATIN. [Concomitant]
     Active Substance: NYSTATIN
  10. PREGABALIN. [Concomitant]
     Active Substance: PREGABALIN
  11. PIPERACILLIN AND TAZOBACTAM [Concomitant]
     Active Substance: PIPERACILLIN SODIUM\TAZOBACTAM SODIUM
  12. AMIODARONE [Concomitant]
     Active Substance: AMIODARONE
  13. FENTANYL. [Concomitant]
     Active Substance: FENTANYL
  14. MACROGOL [Concomitant]
     Active Substance: POLYETHYLENE GLYCOLS
  15. PARACETAMOL [Concomitant]
     Active Substance: ACETAMINOPHEN
  16. RIVAROXABAN [Concomitant]
     Active Substance: RIVAROXABAN
  17. SANDO K [POTASSIUM BICARBONATE;POTASSIUM CHLORIDE] [Concomitant]
     Active Substance: POTASSIUM BICARBONATE\POTASSIUM CHLORIDE

REACTIONS (8)
  - Mucocutaneous ulceration [Recovering/Resolving]
  - Pathogen resistance [Unknown]
  - Chest pain [Unknown]
  - Rash maculo-papular [Recovering/Resolving]
  - Lower respiratory tract infection [Unknown]
  - Stevens-Johnson syndrome [Recovering/Resolving]
  - Sepsis [Recovering/Resolving]
  - Pleuritic pain [Unknown]

NARRATIVE: CASE EVENT DATE: 20210516
